FAERS Safety Report 4649148-7 (Version None)
Quarter: 2005Q2

REPORT INFORMATION
  Report Type: 
  Country: None (occurrence: None)
  Receive Date: 20050429
  Receipt Date: 20050426
  Transmission Date: 20051028
  Serious: Yes (Other)
  Sender: FDA-Public Use
  Company Number: 2005007550

PATIENT
  Age: 35 Year
  Sex: Male
  Weight: 70 kg

DRUGS (4)
  1. EPIVIR [Suspect]
     Dosage: 150MG TEN TIMES PER DAY
     Route: 048
  2. BROMAZANIL [Suspect]
     Dosage: 6MG TWENTY TIMES PER DAY
     Route: 048
  3. ZERIT [Suspect]
     Dosage: 40MG TEN TIMES PER DAY
     Route: 048
  4. VIRAMUNE [Suspect]
     Dosage: 200MG TEN TIMES PER DAY
     Route: 048

REACTIONS (4)
  - INTENTIONAL MISUSE [None]
  - OVERDOSE [None]
  - SUICIDE ATTEMPT [None]
  - VOMITING [None]
